FAERS Safety Report 24703149 (Version 6)
Quarter: 2025Q1

REPORT INFORMATION
  Report Type: Spontaneous
  Country: US (occurrence: US)
  Receive Date: 20241205
  Receipt Date: 20250218
  Transmission Date: 20250409
  Serious: No
  Sender: PFIZER
  Company Number: US-PFIZER INC-PV202400146867

PATIENT
  Sex: Male
  Weight: 4.24 kg

DRUGS (4)
  1. GENOTROPIN [Suspect]
     Active Substance: SOMATROPIN
     Indication: Hypopituitarism
     Dosage: DAILY DOSE 0.1 MG/DAY 7 DAYS/WEEK
     Route: 058
     Dates: start: 20241114
  2. GENOTROPIN [Suspect]
     Active Substance: SOMATROPIN
     Indication: Growth hormone deficiency
  3. LEVOTHYROXINE [Concomitant]
     Active Substance: LEVOTHYROXINE
     Indication: Hypothyroidism
     Dosage: 37.5 UG, DAILY
  4. HYDROCORTISONE [Concomitant]
     Active Substance: HYDROCORTISONE
     Indication: Glucocorticoid deficiency
     Dosage: 0.76 MG, 3X/DAY

REACTIONS (4)
  - Product communication issue [Recovered/Resolved]
  - Device leakage [Recovered/Resolved]
  - Wrong technique in device usage process [Unknown]
  - Poor quality device used [Unknown]

NARRATIVE: CASE EVENT DATE: 20241101
